FAERS Safety Report 17774066 (Version 1)
Quarter: 2020Q2

REPORT INFORMATION
  Report Type: Spontaneous
  Country: US (occurrence: US)
  Receive Date: 20200513
  Receipt Date: 20200513
  Transmission Date: 20200714
  Serious: No
  Sender: FDA-Public Use
  Company Number: US-TEVA-2020-US-1234005

PATIENT
  Sex: Male

DRUGS (1)
  1. TESTOSTERONE GEL 1% [Suspect]
     Active Substance: TESTOSTERONE
     Dosage: GENERIC OF ANDROGEL.
     Route: 061

REACTIONS (3)
  - Product substitution issue [Unknown]
  - Application site dermatitis [Not Recovered/Not Resolved]
  - Reaction to excipient [Unknown]
